FAERS Safety Report 9506011 (Version 1)
Quarter: 2013Q1

REPORT INFORMATION
  Report Type: Spontaneous
  Country: US (occurrence: None)
  Receive Date: 20130305
  Receipt Date: 20130305
  Transmission Date: 20140127
  Serious: No
  Sender: FDA-Public Use
  Company Number: 1000039556

PATIENT
  Age: 71 Year
  Sex: Male

DRUGS (6)
  1. DALIRESP [Suspect]
     Indication: CHRONIC OBSTRUCTIVE PULMONARY DISEASE
     Route: 048
     Dates: start: 201209
  2. SYMBICORT(BUDESONIDE W/FORMOTEROL FUMARATE)(BUDESONIDE W/FORMOTEROL FUMARATE) [Concomitant]
  3. ATORVASTATIN(ATORVASTATIN)(ATORVASTATIN) [Concomitant]
  4. OMEPRAZOLE(OMEPRAZOLE)(OMEPRAZOLE) [Concomitant]
  5. EXFORGE(DIOVAN AMLO)(DIOVAN AMLO) [Concomitant]
  6. VITAMIN B 12(VITAMIN B NOSE)(VITAMIN B NOS) [Concomitant]

REACTIONS (5)
  - Initial insomnia [None]
  - Dizziness [None]
  - Malaise [None]
  - Decreased appetite [None]
  - Dyspnoea [None]
